FAERS Safety Report 17419034 (Version 2)
Quarter: 2020Q1

REPORT INFORMATION
  Report Type: Spontaneous
  Country: DK (occurrence: DK)
  Receive Date: 20200214
  Receipt Date: 20200323
  Transmission Date: 20200409
  Serious: Yes (Hospitalization)
  Sender: FDA-Public Use
  Company Number: NVSC2020DK036091

PATIENT
  Age: 58 Year
  Sex: Male

DRUGS (5)
  1. PAMOL [Concomitant]
     Active Substance: ACETAMINOPHEN
     Indication: PAIN
     Dosage: STYRKE: 500 MG, DOSIS: 2 TABLETTER EFTER BEHOV H?JST 4 GANGE DAGLIG
     Route: 048
     Dates: start: 20161219
  2. IBUPROFEN. [Concomitant]
     Active Substance: IBUPROFEN
     Indication: ARTHRITIS
     Dosage: STYRKE: 400 MG, DOSIS: 1 TABLET EFTER BEHOV H?JST 3 GANGE DAGLIG
     Route: 048
     Dates: start: 20161219
  3. EBETREX 10 MG/ML SOLUTION FOR INJECTION, PRE-FILLED SYRINGE [Suspect]
     Active Substance: METHOTREXATE SODIUM
     Indication: PSORIATIC ARTHROPATHY
     Dosage: 20 MG, QW (STYRKE: 20MG/ML)
     Route: 058
  4. ALPROSTADIL. [Concomitant]
     Active Substance: ALPROSTADIL
     Indication: ERECTILE DYSFUNCTION
     Dosage: STYRKE: 10 ?G, DOSIS: EFTER SKRIFTLIG ANVISNING
     Route: 065
     Dates: start: 20131113
  5. FOLIMET [Concomitant]
     Active Substance: FOLIC ACID
     Indication: ADVERSE DRUG REACTION
     Dosage: STYRKE: 5 MG
     Route: 048
     Dates: start: 20151112

REACTIONS (1)
  - Pancreatitis acute [Recovered/Resolved]

NARRATIVE: CASE EVENT DATE: 20191102
